FAERS Safety Report 23819603 (Version 1)
Quarter: 2024Q2

REPORT INFORMATION
  Report Type: Spontaneous
  Country: RU (occurrence: None)
  Receive Date: 20240506
  Receipt Date: 20240506
  Transmission Date: 20240716
  Serious: Yes (Other)
  Sender: FDA-Public Use
  Company Number: RU-ROCHE-3553196

PATIENT
  Age: 58 Year
  Sex: Male

DRUGS (3)
  1. VEMURAFENIB [Suspect]
     Active Substance: VEMURAFENIB
     Indication: Metastatic malignant melanoma
     Route: 065
     Dates: start: 20210317
  2. COBIMETINIB [Suspect]
     Active Substance: COBIMETINIB
     Indication: Metastatic malignant melanoma
     Route: 065
     Dates: start: 20210317
  3. PEMBROLIZUMAB [Suspect]
     Active Substance: PEMBROLIZUMAB
     Indication: Metastatic malignant melanoma
     Route: 065
     Dates: start: 20191122

REACTIONS (13)
  - Toxicity to various agents [Unknown]
  - Anaemia [Unknown]
  - Hepatotoxicity [Unknown]
  - Thyroiditis [Unknown]
  - Neurotoxicity [Unknown]
  - Muscle spasms [Unknown]
  - Hyperaemia [Unknown]
  - Rash papular [Unknown]
  - Skin hyperpigmentation [Unknown]
  - Leukopenia [Unknown]
  - Neutropenia [Unknown]
  - Skin toxicity [Unknown]
  - Haematotoxicity [Unknown]
